FAERS Safety Report 8503873-6 (Version None)
Quarter: 2012Q3

REPORT INFORMATION
  Report Type: 
  Country: None (occurrence: None)
  Receive Date: 20120711
  Receipt Date: 20120703
  Transmission Date: 20120928
  Serious: Yes (Hospitalization, Other)
  Sender: FDA-Public Use
  Company Number: US-JNJFOC-20120605803

PATIENT
  Sex: Male
  Weight: 51.1 kg

DRUGS (9)
  1. MESALAMINE [Concomitant]
  2. REMICADE [Suspect]
     Indication: CROHN'S DISEASE
     Route: 042
     Dates: start: 20120418
  3. REMICADE [Suspect]
     Route: 042
     Dates: start: 20120430
  4. REMICADE [Suspect]
     Route: 042
     Dates: start: 20120531
  5. CALCIUM CARBONATE [Concomitant]
  6. VITAMIN D [Concomitant]
  7. PENTASA [Concomitant]
  8. FERROUS SULFATE TAB [Concomitant]
  9. MERCAPTOPURINE [Concomitant]

REACTIONS (3)
  - PERIRECTAL ABSCESS [None]
  - ANAL FISTULA [None]
  - YERSINIA INFECTION [None]
